FAERS Safety Report 24725133 (Version 1)
Quarter: 2024Q4

REPORT INFORMATION
  Report Type: Report from Study
  Country: US (occurrence: US)
  Receive Date: 20241212
  Receipt Date: 20241212
  Transmission Date: 20250114
  Serious: Yes (Hospitalization)
  Sender: ROCHE
  Company Number: US-ROCHE-3449632

PATIENT
  Age: 6 Year
  Sex: Female
  Weight: 15.1 kg

DRUGS (1)
  1. EVRYSDI [Suspect]
     Active Substance: RISDIPLAM
     Indication: Spinal muscular atrophy
     Route: 065
     Dates: end: 20220920

REACTIONS (10)
  - Respirovirus test positive [Unknown]
  - Respiratory distress [Unknown]
  - Gastrostomy tube site complication [Unknown]
  - Catheter site haemorrhage [Unknown]
  - Oxygen saturation decreased [Unknown]
  - Parainfluenzae virus infection [Recovered/Resolved]
  - COVID-19 [Recovered/Resolved]
  - Heart rate increased [Unknown]
  - Ear infection [Unknown]
  - Respiratory syncytial virus infection [Unknown]

NARRATIVE: CASE EVENT DATE: 20230709
